FAERS Safety Report 25413925 (Version 4)
Quarter: 2025Q3

REPORT INFORMATION
  Report Type: Spontaneous
  Country: JP (occurrence: JP)
  Receive Date: 20250609
  Receipt Date: 20250710
  Transmission Date: 20251021
  Serious: Yes (Death, Hospitalization)
  Sender: AMGEN
  Company Number: JP-AMGEN-JPNSP2025110527

PATIENT
  Age: 8 Decade
  Sex: Male

DRUGS (1)
  1. IMDELLTRA [Suspect]
     Active Substance: TARLATAMAB-DLLE
     Indication: Small cell lung cancer
     Dosage: 1 MILLIGRAM, QWK (ONCE A WEEK) DRIP INFUSION
     Route: 040
     Dates: start: 20250528, end: 20250604

REACTIONS (3)
  - Cytokine release syndrome [Not Recovered/Not Resolved]
  - Staphylococcal infection [Fatal]
  - Tremor [Unknown]

NARRATIVE: CASE EVENT DATE: 20250528
